FAERS Safety Report 8568851 (Version 2)
Quarter: 2014Q1

REPORT INFORMATION
  Report Type: Spontaneous
  Country: US (occurrence: None)
  Receive Date: 20120323
  Receipt Date: 20130305
  Transmission Date: 20141002
  Serious: Yes (Hospitalization, Other)
  Sender: FDA-Public Use
  Company Number: 163-21880-11113297

PATIENT
  Age: 65 Year
  Sex: Male

DRUGS (25)
  1. REVLIMID (LENALIDOMIDE) (25MILLIGRAM, CAPSULES) [Suspect]
     Indication: PLASMA CELL MYELOMA
     Dosage: 25 MG, 1 IN 1 D, PO, 25 MG, PO
     Route: 048
     Dates: start: 20110913, end: 20111031
  2. FOLIC ACID [Concomitant]
  3. MAGNESIUM OXIDE (MAGNESIUM OXIDE) [Concomitant]
  4. CELEXA [Concomitant]
  5. PROTONIX [Concomitant]
  6. NORVASC [Concomitant]
  7. ZANAFLEX [Concomitant]
  8. LOPRESSOR [Concomitant]
  9. MICROZIDE [Concomitant]
  10. MIRTAZAPINE (MIRTAZAPINE) [Concomitant]
  11. ABILIFY [Concomitant]
  12. VITAMINS [Concomitant]
  13. THIAMINE HYDROCHLORIDE [Concomitant]
  14. HYDROCHLOROTHIAZIDE (HYDROCHLOROTHIAZIDE) [Concomitant]
  15. REMERON [Concomitant]
  16. COUMADIN [Concomitant]
  17. HEPARIN SODIUM (HEPARIN SODIUM) [Concomitant]
  18. FLU VACCINE (VACCINES) [Concomitant]
  19. POTASSIUM CHLORIDE [Concomitant]
  20. MAGNESIUM SULFATE [Concomitant]
  21. MIRALAX [Concomitant]
  22. MYCOSTATIN [Concomitant]
  23. POTASSIUM CHLORIDE [Concomitant]
  24. PNEUMOVAX 23 [Concomitant]
  25. COLONY STIMULATING FACTORS (COLONY STIMULATING FACTORS) [Concomitant]

REACTIONS (5)
  - Pancytopenia [None]
  - Abdominal pain [None]
  - Constipation [None]
  - Diarrhoea [None]
  - Vomiting [None]
